FAERS Safety Report 23364192 (Version 2)
Quarter: 2024Q1

REPORT INFORMATION
  Report Type: Spontaneous
  Country: CZ (occurrence: CZ)
  Receive Date: 20240104
  Receipt Date: 20240119
  Transmission Date: 20240409
  Serious: Yes (Life-Threatening, Hospitalization, Disabling)
  Sender: FDA-Public Use
  Company Number: None

PATIENT
  Age: 71 Year
  Sex: Female

DRUGS (1)
  1. MABTHERA [Suspect]
     Active Substance: RITUXIMAB
     Indication: Neuromyelitis optica spectrum disorder
     Dosage: FIRST ADMINISTRATION 1+1 GRAM, WITH REMINDER DOSES EVERY 6 MONTHS, EXTENDING THE INTERVAL TO 1 GRAM
     Route: 041
     Dates: start: 20150315, end: 20231020

REACTIONS (7)
  - Colitis [Not Recovered/Not Resolved]
  - Cachexia [Not Recovered/Not Resolved]
  - Diarrhoea [Not Recovered/Not Resolved]
  - Vomiting [Not Recovered/Not Resolved]
  - Duodenitis [Not Recovered/Not Resolved]
  - Malnutrition [Not Recovered/Not Resolved]
  - Terminal ileitis [Not Recovered/Not Resolved]

NARRATIVE: CASE EVENT DATE: 20231023
